FAERS Safety Report 5699228-2 (Version None)
Quarter: 2008Q2

REPORT INFORMATION
  Report Type: 
  Country: None (occurrence: None)
  Receive Date: 20080408
  Receipt Date: 20080408
  Transmission Date: 20081010
  Serious: No
  Sender: FDA-Public Use
  Company Number: None

PATIENT
  Age: 35 Year
  Sex: Female

DRUGS (4)
  1. ZANAFLEX [Suspect]
     Dates: start: 20070619, end: 20070806
  2. VOLTAREN [Suspect]
     Dates: start: 20070727, end: 20070806
  3. TYLENOL (CAPLET) [Concomitant]
  4. INSULIN [Concomitant]

REACTIONS (6)
  - ABDOMINAL PAIN [None]
  - EOSINOPHILIA [None]
  - HEPATITIS VIRAL [None]
  - LIVER INJURY [None]
  - PYREXIA [None]
  - VOMITING [None]
